APPROVED DRUG PRODUCT: HALOPERIDOL
Active Ingredient: HALOPERIDOL
Strength: 5MG
Dosage Form/Route: TABLET;ORAL
Application: A071173 | Product #005 | TE Code: AB
Applicant: INNOGENIX LLC
Approved: Jan 7, 1988 | RLD: No | RS: No | Type: RX